FAERS Safety Report 4726416-1 (Version None)
Quarter: 2005Q3

REPORT INFORMATION
  Report Type: 
  Country: None (occurrence: None)
  Receive Date: 20050726
  Receipt Date: 20050111
  Transmission Date: 20060218
  Serious: No
  Sender: FDA-Public Use
  Company Number: REM_00084_2005

PATIENT
  Age: 75 Year
  Sex: Female
  Weight: 71.8 kg

DRUGS (15)
  1. REMODULIN [Suspect]
     Indication: PULMONARY HYPERTENSION
     Dosage: 30 (PARTIALLY ILLEGABLE) KG/MIN CONTINUOUS SC
     Route: 058
     Dates: start: 20041118
  2. PRAVACHOL [Concomitant]
  3. AVAPRO [Concomitant]
  4. TRACLEER [Concomitant]
  5. FOLIC ACID [Concomitant]
  6. HYDROCHLOROTHIAZIDE [Concomitant]
  7. METROPROLOL [Concomitant]
  8. CLARITIN [Concomitant]
  9. CALCIUM GLUCONATE [Concomitant]
  10. GLUCOSAMINE/CONDROITIN [Concomitant]
  11. MULTI-VITAMINS [Concomitant]
  12. ASCORBIC ACID [Concomitant]
  13. ASPIRIN [Concomitant]
  14. PLAVIX [Concomitant]
  15. NAPROSYN [Concomitant]

REACTIONS (2)
  - HAEMATOCRIT DECREASED [None]
  - HAEMOGLOBIN DECREASED [None]
